FAERS Safety Report 7328555-8 (Version None)
Quarter: 2011Q1

REPORT INFORMATION
  Report Type: 
  Country: None (occurrence: None)
  Receive Date: 20110303
  Receipt Date: 20090513
  Transmission Date: 20110831
  Serious: Yes (Death, Other)
  Sender: FDA-Public Use
  Company Number: US-BAYER-200832845NA

PATIENT
  Sex: Male
  Weight: 86.168 kg

DRUGS (39)
  1. GADOLINIUM IN UNSPECIFIED DRUG [Suspect]
     Indication: ANGIOGRAM
     Dosage: 35 ML, ONCE
     Route: 042
     Dates: start: 20060217, end: 20060217
  2. UNCODEABLE ^INVESTIGATIONAL DRUG^ [Concomitant]
     Indication: MYELODYSPLASTIC SYNDROME
  3. PENTOXIFYLLINE [Concomitant]
  4. NORVASC [Concomitant]
     Dosage: 10 MG, QD
  5. GLIPIZIDE [Concomitant]
     Indication: DIABETES MELLITUS
     Dosage: 15 MG, QD
  6. LEVAQUIN [Concomitant]
     Dosage: 250 MG, QOD
  7. MULTIHANCE [Suspect]
     Indication: ANGIOGRAM
     Dosage: UNK
     Dates: start: 20061222, end: 20061222
  8. GADOLINIUM IN UNSPECIFIED DRUG [Suspect]
     Indication: ATHERECTOMY
     Dosage: 70 ML, ONCE
     Dates: start: 20051102, end: 20051102
  9. GADOLINIUM IN UNSPECIFIED DRUG [Suspect]
     Dosage: 48 ML, ONCE
     Dates: start: 20070102, end: 20070102
  10. ACTOS [Concomitant]
     Indication: DIABETES MELLITUS
     Dosage: 40 MG, QD
  11. ARANESP [Concomitant]
  12. OMNISCAN [Suspect]
     Indication: ANGIOGRAM
     Dates: start: 20051004, end: 20051004
  13. LISINOPRIL [Concomitant]
     Dosage: 20 MG, UNK
  14. PLAVIX [Concomitant]
     Indication: CARDIAC FAILURE CONGESTIVE
  15. MAGNEVIST [Suspect]
     Indication: ANGIOGRAM
     Dosage: UNK
     Dates: start: 20050812, end: 20050812
  16. GADOLINIUM IN UNSPECIFIED DRUG [Suspect]
     Dosage: 28 ML, ONCE
     Route: 042
     Dates: start: 20060720, end: 20060720
  17. VISIPAQUE [Concomitant]
     Dosage: 12 ML, ONCE
     Dates: start: 20051102, end: 20051102
  18. NEXIUM [Concomitant]
     Dosage: 40 MG, UNK
  19. ROZEREM [Concomitant]
  20. MAGNEVIST [Suspect]
     Dosage: 40 ML, ONCE
     Route: 042
     Dates: start: 20050907, end: 20050907
  21. OMNISCAN [Suspect]
     Indication: ARTHRECTOMY
     Dates: start: 20051102, end: 20051102
  22. OMNISCAN [Suspect]
     Dates: start: 20060720, end: 20060720
  23. OMNISCAN [Suspect]
     Dates: start: 20070102, end: 20070102
  24. OMNISCAN [Suspect]
     Dates: start: 20070511, end: 20070511
  25. GADOLINIUM IN UNSPECIFIED DRUG [Suspect]
     Dosage: UNK
     Dates: start: 20070306, end: 20070306
  26. QUESTRAN [Concomitant]
     Indication: BLOOD CHOLESTEROL INCREASED
  27. ZEMPLAR [Concomitant]
  28. MAGNEVIST [Suspect]
     Dosage: 40 ML, ONCE
     Dates: start: 20051209, end: 20051209
  29. GADOLINIUM IN UNSPECIFIED DRUG [Suspect]
     Indication: ARTERIOGRAM
     Dosage: 38 ML, ONCE
     Dates: start: 20051004, end: 20051004
  30. LIPITOR [Concomitant]
     Dosage: 10 MG, QD
  31. COZAAR [Concomitant]
     Indication: HYPERTENSION
     Dosage: 100 MG, QD
  32. OMNIPAQUE 140 [Concomitant]
     Indication: ANGIOGRAM
     Dosage: 14 ML, UNK
     Dates: start: 20060720, end: 20060720
  33. ALBUTEROL [Concomitant]
  34. MAGNEVIST [Suspect]
     Dosage: 40 ML, ONCE
     Route: 042
     Dates: start: 20060712, end: 20060712
  35. OMNISCAN [Suspect]
     Dosage: 3.5 ML, UNK
     Dates: start: 20060217, end: 20060217
  36. OMNISCAN [Suspect]
     Dates: start: 20070306, end: 20070306
  37. VISIPAQUE [Concomitant]
     Dosage: 4 ML, ONCE
     Dates: start: 20051004, end: 20051004
  38. EPOGEN [Concomitant]
  39. CHOLESTYRAMINE [Concomitant]
     Dosage: 10 MG, QD

REACTIONS (17)
  - PAIN OF SKIN [None]
  - OEDEMA PERIPHERAL [None]
  - SKIN OEDEMA [None]
  - SKIN INDURATION [None]
  - SKIN FIBROSIS [None]
  - NEPHROGENIC SYSTEMIC FIBROSIS [None]
  - JOINT STIFFNESS [None]
  - SCAR [None]
  - SKIN TIGHTNESS [None]
  - GAIT DISTURBANCE [None]
  - SKIN HYPERTROPHY [None]
  - GENERAL PHYSICAL HEALTH DETERIORATION [None]
  - EXFOLIATIVE RASH [None]
  - JOINT RANGE OF MOTION DECREASED [None]
  - ERYTHEMA [None]
  - DEFORMITY [None]
  - SKIN DISCOLOURATION [None]
